FAERS Safety Report 10205695 (Version 7)
Quarter: 2015Q2

REPORT INFORMATION
  Report Type: Spontaneous
  Country: CA (occurrence: CA)
  Receive Date: 20140530
  Receipt Date: 20150406
  Transmission Date: 20150821
  Serious: Yes (Other)
  Sender: FDA-Public Use
  Company Number: CA-ROCHE-1409404

PATIENT
  Age: 63 Year
  Sex: Female

DRUGS (5)
  1. XOLAIR [Suspect]
     Active Substance: OMALIZUMAB
     Indication: ASTHMA
     Route: 058
     Dates: start: 20131203
  2. XOLAIR [Suspect]
     Active Substance: OMALIZUMAB
     Route: 058
     Dates: start: 20141014
  3. XOLAIR [Suspect]
     Active Substance: OMALIZUMAB
     Route: 058
     Dates: start: 20141209
  4. XOLAIR [Suspect]
     Active Substance: OMALIZUMAB
     Route: 058
     Dates: start: 20140916
  5. XOLAIR [Suspect]
     Active Substance: OMALIZUMAB
     Route: 058
     Dates: start: 20140123

REACTIONS (11)
  - Blood pressure systolic increased [Unknown]
  - Nausea [Unknown]
  - Alopecia [Unknown]
  - Dizziness [Unknown]
  - Pneumonia [Unknown]
  - Depressed mood [Unknown]
  - Influenza [Recovering/Resolving]
  - Body temperature decreased [Unknown]
  - Headache [Unknown]
  - Asthma [Unknown]
  - Malaise [Unknown]

NARRATIVE: CASE EVENT DATE: 20131217
